FAERS Safety Report 21440750 (Version 1)
Quarter: 2022Q4

REPORT INFORMATION
  Report Type: Spontaneous
  Country: US (occurrence: US)
  Receive Date: 20221011
  Receipt Date: 20221011
  Transmission Date: 20230112
  Serious: Yes (Hospitalization, Other)
  Sender: FDA-Public Use
  Company Number: US-NAPPMUNDI-GBR-2022-0102048

PATIENT
  Age: 35 Year
  Sex: Male

DRUGS (22)
  1. HYDROMORPHONE HYDROCHLORIDE [Suspect]
     Active Substance: HYDROMORPHONE HYDROCHLORIDE
     Indication: Breakthrough pain
     Dosage: 2 MILLIGRAM, Q6H (60 TABLETS, NO REFILLS)
     Route: 048
  2. HYDROMORPHONE HYDROCHLORIDE [Suspect]
     Active Substance: HYDROMORPHONE HYDROCHLORIDE
     Dosage: 4 MILLIGRAM, Q6H
     Route: 048
  3. HYDROMORPHONE HYDROCHLORIDE [Suspect]
     Active Substance: HYDROMORPHONE HYDROCHLORIDE
     Dosage: 1-2 MILLIGRAM, Q2H AS NEEDED
     Route: 048
  4. HYDROMORPHONE HYDROCHLORIDE [Suspect]
     Active Substance: HYDROMORPHONE HYDROCHLORIDE
     Dosage: 0.5 MILLIGRAM, Q1H
     Route: 048
  5. HYDROMORPHONE HYDROCHLORIDE [Suspect]
     Active Substance: HYDROMORPHONE HYDROCHLORIDE
     Dosage: 0.4 MILLIGRAM, EVERY 10 MINS
     Route: 048
  6. HYDROMORPHONE HYDROCHLORIDE [Suspect]
     Active Substance: HYDROMORPHONE HYDROCHLORIDE
     Dosage: 4 MILLIGRAM, Q4H AS NEEDED (42 TABLETS, NO REFILLS)
     Route: 048
  7. HYDROMORPHONE HYDROCHLORIDE [Suspect]
     Active Substance: HYDROMORPHONE HYDROCHLORIDE
     Dosage: 16 MILLIGRAM, DAILY
     Route: 048
  8. HYDROMORPHONE HYDROCHLORIDE [Suspect]
     Active Substance: HYDROMORPHONE HYDROCHLORIDE
     Dosage: 35 MILLIGRAM, DAILY
     Route: 048
  9. HYDROMORPHONE HYDROCHLORIDE [Suspect]
     Active Substance: HYDROMORPHONE HYDROCHLORIDE
     Dosage: 80 MILLIGRAM, DAILY
     Route: 048
  10. KETAMINE [Suspect]
     Active Substance: KETAMINE
     Indication: Analgesic therapy
     Dosage: .1 MILLIGRAM PER KILOGRAM PER HOUR
     Route: 065
  11. KETAMINE [Suspect]
     Active Substance: KETAMINE
     Indication: Sickle cell disease
     Dosage: 0.2 MILLIGRAM PER KILOGRAM PER HOUR
     Route: 065
  12. KETAMINE [Suspect]
     Active Substance: KETAMINE
     Dosage: .3 MILLIGRAM PER KILOGRAM PER HOUR
     Route: 065
  13. KETAMINE [Suspect]
     Active Substance: KETAMINE
     Dosage: .4 MILLIGRAM PER KILOGRAM PER HOUR
     Route: 065
  14. HYDROXYUREA [Concomitant]
     Active Substance: HYDROXYUREA
     Indication: Breakthrough pain
     Dosage: 500 MILLIGRAM, BID, 180 CAPSULES, 3 REFILLS
  15. FOLIC ACID [Concomitant]
     Active Substance: FOLIC ACID
     Dosage: 1 MILLIGRAM, DAILY (90 TABLETS, 3 REFILLS)
  16. ACETAMINOPHEN [Concomitant]
     Active Substance: ACETAMINOPHEN
     Indication: Breakthrough pain
     Dosage: 1000 MILLIGRAM, Q6H (OVER THE COUNTER)
  17. ACETAMINOPHEN [Concomitant]
     Active Substance: ACETAMINOPHEN
     Dosage: 325 MILLIGRAM, Q4H
  18. GABAPENTIN [Concomitant]
     Active Substance: GABAPENTIN
     Dosage: 300 MILLIGRAM, Q8H (90 CAPSULES, NO REFILLS)
  19. CELECOXIB [Concomitant]
     Active Substance: CELECOXIB
     Dosage: 200 MILLIGRAM, BID
  20. FUROSEMIDE [Concomitant]
     Active Substance: FUROSEMIDE
     Indication: Anaemia
     Dosage: 20 MILLIGRAM, DAILY AS NEEDED
  21. FUROSEMIDE [Concomitant]
     Active Substance: FUROSEMIDE
     Indication: Swelling
  22. DEXTROSE\SODIUM CHLORIDE [Concomitant]
     Active Substance: DEXTROSE\SODIUM CHLORIDE
     Indication: Breakthrough pain
     Dosage: 125 MILLILITER, Q1H

REACTIONS (4)
  - Sickle cell anaemia with crisis [Recovering/Resolving]
  - Hyperaesthesia [Unknown]
  - Drug withdrawal syndrome [Unknown]
  - Drug ineffective [Unknown]
